FAERS Safety Report 5566974-0 (Version None)
Quarter: 2007Q4

REPORT INFORMATION
  Report Type: 
  Country: None (occurrence: None)
  Receive Date: 20071219
  Receipt Date: 20070802
  Transmission Date: 20080405
  Serious: No
  Sender: FDA-Public Use
  Company Number: US-BRISTOL-MYERS SQUIBB COMPANY-13866454

PATIENT
  Sex: Male
  Weight: 78 kg

DRUGS (3)
  1. PRAVACHOL [Suspect]
     Route: 048
  2. FLONASE [Concomitant]
  3. NASONEX [Concomitant]

REACTIONS (1)
  - DRUG INEFFECTIVE [None]
